FAERS Safety Report 5313473-7 (Version None)
Quarter: 2007Q2

REPORT INFORMATION
  Report Type: 
  Country: None (occurrence: None)
  Receive Date: 20070501
  Receipt Date: 20070425
  Transmission Date: 20071010
  Serious: Yes (Hospitalization, Other)
  Sender: FDA-Public Use
  Company Number: HQWYE835025APR07

PATIENT
  Sex: Female

DRUGS (1)
  1. INDERAL LA [Suspect]
     Dosage: UNKNOWN
     Route: 048

REACTIONS (4)
  - CHOKING [None]
  - FUNGUS URINE TEST POSITIVE [None]
  - HYPOTENSION [None]
  - LOSS OF CONSCIOUSNESS [None]
